FAERS Safety Report 14082141 (Version 1)
Quarter: 2017Q4

REPORT INFORMATION
  Report Type: Report from Study
  Country: US (occurrence: US)
  Receive Date: 20171013
  Receipt Date: 20171013
  Transmission Date: 20180321
  Serious: Yes (Other)
  Sender: FDA-Public Use
  Company Number: US-UCBSA-2017040327

PATIENT
  Sex: Female
  Weight: 56.7 kg

DRUGS (17)
  1. LACOSAMIDE. [Suspect]
     Active Substance: LACOSAMIDE
     Indication: PRODUCT USED FOR UNKNOWN INDICATION
     Dosage: 50 MG
     Route: 048
  2. LACOSAMIDE. [Suspect]
     Active Substance: LACOSAMIDE
     Dosage: 100 MG, 3X/DAY (TID)
     Route: 048
  3. LACOSAMIDE. [Suspect]
     Active Substance: LACOSAMIDE
     Dosage: 100 MG, 4X/DAY (QID)
     Route: 048
     Dates: start: 20170928
  4. KEPPRA [Suspect]
     Active Substance: LEVETIRACETAM
     Indication: EPILEPSY
     Dosage: UNK
  5. FOLIC ACID. [Concomitant]
     Active Substance: FOLIC ACID
     Dosage: 2 MG, 2X/DAY (BID)
     Route: 048
  6. KEPPRA [Suspect]
     Active Substance: LEVETIRACETAM
     Dosage: 2000 MG, 2X/DAY (BID)
     Route: 048
  7. LAMICTAL [Suspect]
     Active Substance: LAMOTRIGINE
     Dosage: 275 MG, 2X/DAY (BID)
     Route: 048
     Dates: start: 201701
  8. FOLIC ACID. [Concomitant]
     Active Substance: FOLIC ACID
     Indication: PRODUCT USED FOR UNKNOWN INDICATION
     Dosage: 1 MG, 2X/DAY (BID)
     Route: 048
  9. LACOSAMIDE. [Suspect]
     Active Substance: LACOSAMIDE
     Dosage: 100 MG
     Route: 048
  10. KEPPRA [Suspect]
     Active Substance: LEVETIRACETAM
     Dosage: 1000 MG, 2X/DAY (BID)
     Route: 048
  11. ATIVAN [Concomitant]
     Active Substance: LORAZEPAM
     Indication: SEIZURE CLUSTER
     Dosage: 1 MG, AS NEEDED (PRN)
     Route: 048
  12. LAMICTAL [Suspect]
     Active Substance: LAMOTRIGINE
     Dosage: 150 MG, 2X/DAY (BID)
  13. LAMICTAL [Suspect]
     Active Substance: LAMOTRIGINE
     Dosage: 1.5 TAB AM, 1 TAB NOON AND  1 1.5 TAB BED TIME, 3X/DAY (TID)
  14. LACOSAMIDE. [Suspect]
     Active Substance: LACOSAMIDE
     Dosage: 150 MG
     Route: 048
  15. LACOSAMIDE. [Suspect]
     Active Substance: LACOSAMIDE
     Dosage: 200 MG
     Route: 048
  16. KEPPRA [Suspect]
     Active Substance: LEVETIRACETAM
     Dosage: 750MG (3 TABLETS, 2 TAB, 3 TAB), 3X/DAY (TID)
     Route: 048
  17. LAMICTAL [Suspect]
     Active Substance: LAMOTRIGINE
     Indication: EPILEPSY
     Dosage: UNK

REACTIONS (5)
  - Overdose [Unknown]
  - Drug ineffective [Unknown]
  - Off label use [Unknown]
  - Simple partial seizures [Unknown]
  - Dizziness [Not Recovered/Not Resolved]
